FAERS Safety Report 6219645-1 (Version None)
Quarter: 2009Q2

REPORT INFORMATION
  Report Type: 
  Country: None (occurrence: None)
  Receive Date: 20090609
  Receipt Date: 20090528
  Transmission Date: 20091009
  Serious: Yes (Death, Other)
  Sender: FDA-Public Use
  Company Number: KZ-AVENTIS-200913007EU

PATIENT
  Age: 47 Year
  Sex: Male

DRUGS (5)
  1. FUROSEMIDE [Suspect]
     Indication: DEHYDRATION
     Route: 048
     Dates: start: 20090330, end: 20090409
  2. SOLIAN [Suspect]
     Indication: ACUTE PSYCHOSIS
     Route: 048
     Dates: start: 20090330, end: 20090428
  3. NIKETHAMIDE [Suspect]
     Indication: HYPOTENSION
     Route: 058
     Dates: start: 20090407, end: 20090410
  4. ASPARTIC ACID/MAGNESIUM/POTASSIUM [Concomitant]
     Dosage: DOSE: 2 TABLETS
     Route: 048
     Dates: start: 20090330, end: 20090409
  5. ACTOVEGIN [Concomitant]
     Indication: PROPHYLAXIS
     Route: 030
     Dates: start: 20090413, end: 20090423

REACTIONS (3)
  - HYPERTONIA [None]
  - NEUROLEPTIC MALIGNANT SYNDROME [None]
  - SALIVARY HYPERSECRETION [None]
